FAERS Safety Report 8600346-7 (Version None)
Quarter: 2012Q3

REPORT INFORMATION
  Report Type: 
  Country: None (occurrence: None)
  Receive Date: 20120817
  Receipt Date: 20120814
  Transmission Date: 20120928
  Serious: No
  Sender: FDA-Public Use
  Company Number: US-PFIZER INC-2012198878

PATIENT
  Sex: Male

DRUGS (3)
  1. PRISTIQ [Suspect]
     Dosage: 1/2 TAB A DAY FOR ABOUT 2 WEEKS
  2. PRISTIQ [Suspect]
     Dosage: 150 MG, UNK
  3. PRISTIQ [Suspect]
     Dosage: 50 (1 TAB) A DAY

REACTIONS (3)
  - DEPRESSION [None]
  - INFLUENZA LIKE ILLNESS [None]
  - FEELING ABNORMAL [None]
